FAERS Safety Report 5795567-5 (Version None)
Quarter: 2008Q2

REPORT INFORMATION
  Report Type: 
  Country: None (occurrence: None)
  Receive Date: 20080630
  Receipt Date: 20080618
  Transmission Date: 20081010
  Serious: Yes (Other)
  Sender: FDA-Public Use
  Company Number: CA-PFIZER INC-2008051396

PATIENT
  Sex: Male
  Weight: 50 kg

DRUGS (2)
  1. SUTENT [Suspect]
     Indication: GASTROINTESTINAL STROMAL TUMOUR
     Route: 048
  2. GLEEVEC [Concomitant]

REACTIONS (7)
  - ASTHENIA [None]
  - DEHYDRATION [None]
  - DEMENTIA [None]
  - HYPERTENSION [None]
  - INCONTINENCE [None]
  - MENTAL STATUS CHANGES [None]
  - WEIGHT DECREASED [None]
